FAERS Safety Report 23695439 (Version 1)
Quarter: 2024Q2

REPORT INFORMATION
  Report Type: Spontaneous
  Country: US (occurrence: US)
  Receive Date: 20240402
  Receipt Date: 20240402
  Transmission Date: 20240716
  Serious: No
  Sender: FDA-Public Use
  Company Number: US-TEVA-VS-3164194

PATIENT
  Age: 54 Year
  Sex: Female

DRUGS (1)
  1. BUPRENORPHINE [Suspect]
     Active Substance: BUPRENORPHINE
     Indication: Product used for unknown indication
     Dosage: 15 MCG / HR,  FROM LAST 5 YEARS,
     Route: 065

REACTIONS (3)
  - Product adhesion issue [Unknown]
  - Rash [Unknown]
  - Swelling [Unknown]
